FAERS Safety Report 5979505-8 (Version None)
Quarter: 2008Q4

REPORT INFORMATION
  Report Type: 
  Country: None (occurrence: None)
  Receive Date: 20081204
  Receipt Date: 20081201
  Transmission Date: 20090506
  Serious: Yes (Hospitalization)
  Sender: FDA-Public Use
  Company Number: DE-B.I. PHARMACEUTICALS,INC./RIDGEFIELD-2008-DE-07359DE

PATIENT
  Sex: Female
  Weight: 62 kg

DRUGS (3)
  1. CATAPRESAN 300 [Suspect]
     Dosage: .3MG
     Route: 048
  2. NITRENDIPIN 10 [Suspect]
     Dosage: 10MG
     Route: 048
  3. RAMIPRIL 10 [Suspect]
     Dosage: 10MG
     Route: 048

REACTIONS (3)
  - BRADYCARDIA [None]
  - HYPOTENSION [None]
  - MEDICATION ERROR [None]
